FAERS Safety Report 15215522 (Version 3)
Quarter: 2018Q4

REPORT INFORMATION
  Report Type: Report from Study
  Country: None (occurrence: GB)
  Receive Date: 20180730
  Receipt Date: 20181019
  Transmission Date: 20190204
  Serious: Yes (Death, Congenital Anomaly, Other)
  Sender: FDA-Public Use
  Company Number: GB-ABBVIE-18S-167-2427621-00

PATIENT
  Sex: Female
  Weight: 1.99 kg

DRUGS (4)
  1. DALTEPARIN [Suspect]
     Active Substance: DALTEPARIN
     Indication: MATERNAL EXPOSURE TIMING UNSPECIFIED
     Route: 064
  2. ATAZANAVIR SULFATE. [Suspect]
     Active Substance: ATAZANAVIR SULFATE
     Indication: MATERNAL EXPOSURE TIMING UNSPECIFIED
     Route: 064
  3. EMTRICITABINE [Suspect]
     Active Substance: EMTRICITABINE
     Indication: MATERNAL EXPOSURE TIMING UNSPECIFIED
     Route: 064
  4. RITONAVIR. [Suspect]
     Active Substance: RITONAVIR
     Indication: MATERNAL EXPOSURE TIMING UNSPECIFIED
     Route: 064

REACTIONS (7)
  - Foetal exposure during pregnancy [Recovered/Resolved]
  - Trisomy 18 [Unknown]
  - Death [Fatal]
  - Ventricular septal defect [Unknown]
  - Nervous system disorder [Unknown]
  - Oesophageal atresia [Recovered/Resolved]
  - Oesophageal fistula [Recovered/Resolved]

NARRATIVE: CASE EVENT DATE: 20171001
